FAERS Safety Report 16495807 (Version 4)
Quarter: 2020Q2

REPORT INFORMATION
  Report Type: Spontaneous
  Country: FR (occurrence: FR)
  Receive Date: 20190628
  Receipt Date: 20200421
  Transmission Date: 20200713
  Serious: Yes (Hospitalization, Other)
  Sender: FDA-Public Use
  Company Number: PHHY2019FR145479

PATIENT
  Sex: Female

DRUGS (12)
  1. CORTANCYL [Suspect]
     Active Substance: PREDNISONE
     Indication: THROMBOTIC THROMBOCYTOPENIC PURPURA
     Dosage: 80 MG, QD
     Route: 065
     Dates: start: 20161118
  2. CORTANCYL [Suspect]
     Active Substance: PREDNISONE
     Dosage: 20 MG, QD
     Route: 065
  3. ORACILLINE [Suspect]
     Active Substance: PENICILLIN V
     Indication: ANTIBIOTIC PROPHYLAXIS
     Dosage: 1,000,000 IU/10 ML
     Route: 048
     Dates: start: 20161220
  4. CORTICOSTEROID NOS [Concomitant]
     Active Substance: CORTICOSTEROID NOS
     Dosage: 80 MG, QD
     Route: 065
  5. MABTHERA [Suspect]
     Active Substance: RITUXIMAB
     Indication: THROMBOTIC THROMBOCYTOPENIC PURPURA
     Dosage: 2 DF, ONCE/SINGLE
     Route: 042
     Dates: start: 20161207, end: 20161207
  6. SPECIAFOLDINE [Suspect]
     Active Substance: FOLIC ACID
     Indication: VITAMIN SUPPLEMENTATION
     Dosage: 1 DF, QD
     Route: 065
     Dates: start: 20161121
  7. KARDEGIC [Suspect]
     Active Substance: ASPIRIN DL-LYSINE
     Indication: PROPHYLAXIS
     Dosage: 1 DF, QD
     Route: 048
     Dates: start: 20161126
  8. CORTICOSTEROID NOS [Concomitant]
     Active Substance: CORTICOSTEROID NOS
     Dosage: 20 MG, QD
     Route: 065
  9. CORTANCYL [Suspect]
     Active Substance: PREDNISONE
     Dosage: 80 MG, QD
     Route: 065
     Dates: start: 201701
  10. CORTICOSTEROID NOS [Concomitant]
     Active Substance: CORTICOSTEROID NOS
     Indication: PRODUCT USED FOR UNKNOWN INDICATION
     Dosage: 80 MG, QD
     Route: 065
  11. ADRENALINE [Concomitant]
     Active Substance: EPINEPHRINE
     Indication: PRODUCT USED FOR UNKNOWN INDICATION
     Dosage: UNK
     Route: 065
  12. PANTOPRAZOLE [Suspect]
     Active Substance: PANTOPRAZOLE
     Indication: PROPHYLAXIS AGAINST GASTROINTESTINAL ULCER
     Dosage: 20 MG, QD
     Route: 065
     Dates: start: 20161121

REACTIONS (6)
  - Premature delivery [Unknown]
  - Thrombocytopenia [Recovered/Resolved]
  - Maternal exposure during pregnancy [Unknown]
  - Off label use [Unknown]
  - Pre-eclampsia [Recovered/Resolved]
  - Intentional product use issue [Unknown]

NARRATIVE: CASE EVENT DATE: 20161220
